FAERS Safety Report 12135965 (Version 4)
Quarter: 2018Q3

REPORT INFORMATION
  Report Type: Spontaneous
  Country: CA (occurrence: CA)
  Receive Date: 20160302
  Receipt Date: 20180723
  Transmission Date: 20181010
  Serious: Yes (Other)
  Sender: FDA-Public Use
  Company Number: CA-ROCHE-1718285

PATIENT
  Age: 64 Year
  Sex: Male

DRUGS (1)
  1. XOLAIR [Suspect]
     Active Substance: OMALIZUMAB
     Indication: ASTHMA
     Route: 058
     Dates: start: 20150423

REACTIONS (14)
  - Diverticulitis [Unknown]
  - Middle insomnia [Unknown]
  - Dust allergy [Unknown]
  - Somnolence [Unknown]
  - Sensitivity to weather change [Unknown]
  - Dyspnoea [Unknown]
  - Stress [Unknown]
  - Cough [Unknown]
  - Nephrolithiasis [Unknown]
  - Chest discomfort [Unknown]
  - Wheezing [Unknown]
  - Dizziness [Unknown]
  - Asthma [Unknown]
  - Perfume sensitivity [Unknown]

NARRATIVE: CASE EVENT DATE: 20150423
